FAERS Safety Report 9132146 (Version 1)
Quarter: 2013Q1

REPORT INFORMATION
  Report Type: Spontaneous
  Country: US (occurrence: US)
  Receive Date: 20130301
  Receipt Date: 20130301
  Transmission Date: 20140127
  Serious: No
  Sender: FDA-Public Use
  Company Number: US-PFIZER INC-2013069610

PATIENT
  Age: 46 Year
  Sex: Male

DRUGS (5)
  1. EFFEXOR XR [Suspect]
     Dosage: 75 MG, 1X/DAY (1 PO QD)
     Route: 048
  2. VITAMIN C [Concomitant]
     Dosage: UNK
  3. ANBESOL REGULAR STRENGTH GEL [Concomitant]
     Dosage: UNK
  4. APRISO [Concomitant]
     Dosage: UNK
  5. ACETAMINOPHEN W/OXYCODONE [Concomitant]
     Dosage: UNK

REACTIONS (3)
  - Malaise [Unknown]
  - Fatigue [Unknown]
  - Emotional distress [Unknown]
